FAERS Safety Report 7089004-0 (Version None)
Quarter: 2010Q4

REPORT INFORMATION
  Report Type: 
  Country: None (occurrence: None)
  Receive Date: 20101108
  Receipt Date: 20101104
  Transmission Date: 20110411
  Serious: Yes (Hospitalization)
  Sender: FDA-Public Use
  Company Number: A0794759A

PATIENT
  Age: 62 Year
  Sex: Male

DRUGS (1)
  1. AVANDIA [Suspect]
     Indication: TYPE 2 DIABETES MELLITUS
     Dosage: 8MG PER DAY
     Route: 048
     Dates: start: 20030101, end: 20070101

REACTIONS (1)
  - MYOCARDIAL INFARCTION [None]
